FAERS Safety Report 4939375-3 (Version None)
Quarter: 2006Q1

REPORT INFORMATION
  Report Type: 
  Country: None (occurrence: None)
  Receive Date: 20060306
  Receipt Date: 20060217
  Transmission Date: 20060701
  Serious: Yes (Death)
  Sender: FDA-Public Use
  Company Number: 2006-00380

PATIENT
  Age: 67 Year
  Sex: Male

DRUGS (2)
  1. VELCADE [Suspect]
     Indication: MULTIPLE MYELOMA
     Dates: start: 20031001, end: 20031101
  2. DEXAMETHASONE TAB [Concomitant]

REACTIONS (3)
  - CARDIOMEGALY [None]
  - SEPSIS [None]
  - THERAPY NON-RESPONDER [None]
